FAERS Safety Report 4353577-9 (Version None)
Quarter: 2004Q2

REPORT INFORMATION
  Report Type: 
  Country: None (occurrence: None)
  Receive Date: 20040430
  Receipt Date: 20040421
  Transmission Date: 20050107
  Serious: Yes (Life-Threatening, Hospitalization)
  Sender: FDA-Public Use
  Company Number: 2004-04-1358

PATIENT
  Age: 50 Year
  Sex: Female

DRUGS (2)
  1. PEG-INTRON [Suspect]
     Indication: HEPATITIS C
     Dosage: 64 MCG* SUBCUTANEOUS
     Route: 058
     Dates: start: 20030922
  2. REBETOL [Suspect]
     Indication: HEPATITIS C
     Dosage: 400 MG* BID ORAL
     Route: 048
     Dates: start: 20030922

REACTIONS (9)
  - ARTERIAL THROMBOSIS LIMB [None]
  - CARDIAC FAILURE CONGESTIVE [None]
  - DYSPNOEA [None]
  - HEPATITIS C [None]
  - POST PROCEDURAL COMPLICATION [None]
  - POSTOPERATIVE THROMBOSIS [None]
  - PULMONARY EMBOLISM [None]
  - PULMONARY OEDEMA [None]
  - VAGINAL HYSTERECTOMY [None]
